FAERS Safety Report 15664233 (Version 2)
Quarter: 2018Q4

REPORT INFORMATION
  Report Type: Spontaneous
  Country: US (occurrence: US)
  Receive Date: 20181128
  Receipt Date: 20181218
  Transmission Date: 20190205
  Serious: No
  Sender: FDA-Public Use
  Company Number: US-AMGEN-USASP2018168439

PATIENT
  Age: 56 Year
  Sex: Male
  Weight: 123.26 kg

DRUGS (3)
  1. PREDNISONE. [Concomitant]
     Active Substance: PREDNISONE
     Dosage: UNK
     Route: 065
  2. NPLATE [Suspect]
     Active Substance: ROMIPLOSTIM
     Indication: IMMUNE THROMBOCYTOPENIC PURPURA
     Dosage: 120 MCG, UNK
     Route: 065
     Dates: start: 20181005
  3. NPLATE [Suspect]
     Active Substance: ROMIPLOSTIM
     Dosage: 1 MCG/KG, UNK
     Route: 065
     Dates: start: 20181101

REACTIONS (4)
  - Off label use [Unknown]
  - Thrombocytosis [Unknown]
  - Product preparation error [Unknown]
  - Platelet count abnormal [Unknown]

NARRATIVE: CASE EVENT DATE: 20181005
